FAERS Safety Report 20091302 (Version 1)
Quarter: 2021Q4

REPORT INFORMATION
  Report Type: Spontaneous
  Country: US (occurrence: None)
  Receive Date: 20211119
  Receipt Date: 20211119
  Transmission Date: 20220304
  Serious: Yes (Hospitalization)
  Sender: FDA-Public Use
  Company Number: None

PATIENT
  Age: 86 Year
  Sex: Male
  Weight: 87 kg

DRUGS (1)
  1. TRAZODONE HYDROCHLORIDE [Suspect]
     Active Substance: TRAZODONE HYDROCHLORIDE
     Indication: Insomnia
     Dosage: FREQUENCY : AS NEEDED;?
     Route: 048
     Dates: end: 20210912

REACTIONS (7)
  - Fall [None]
  - Hallucination, visual [None]
  - Head injury [None]
  - Skin laceration [None]
  - Abnormal dreams [None]
  - Hypnopompic hallucination [None]
  - Confusional state [None]

NARRATIVE: CASE EVENT DATE: 20210912
